FAERS Safety Report 24346362 (Version 1)
Quarter: 2024Q3

REPORT INFORMATION
  Report Type: Spontaneous
  Country: US (occurrence: US)
  Receive Date: 20240921
  Receipt Date: 20240921
  Transmission Date: 20241016
  Serious: No
  Sender: ABBVIE
  Company Number: US-ABBVIE-5932317

PATIENT
  Age: 37 Year

DRUGS (1)
  1. BOTOX [Suspect]
     Active Substance: ONABOTULINUMTOXINA
     Indication: Product used for unknown indication
     Dosage: TIME INTERVAL: AS NECESSARY
     Route: 065

REACTIONS (3)
  - Headache [Unknown]
  - Paradoxical masseter muscle bulging [Recovered/Resolved]
  - Muscle hypertrophy [Unknown]

NARRATIVE: CASE EVENT DATE: 20240701
